FAERS Safety Report 5823389-5 (Version None)
Quarter: 2008Q3

REPORT INFORMATION
  Report Type: 
  Country: None (occurrence: None)
  Receive Date: 20080725
  Receipt Date: 20080717
  Transmission Date: 20090109
  Serious: Yes (Hospitalization)
  Sender: FDA-Public Use
  Company Number: US-ASTRAZENECA-2002UW10757

PATIENT
  Age: 40 Year
  Sex: Female
  Weight: 118.8 kg

DRUGS (9)
  1. SEROQUEL [Suspect]
     Indication: BIPOLAR DISORDER
     Route: 048
  2. SEROQUEL [Suspect]
     Indication: PSYCHOTIC DISORDER
     Route: 048
  3. SEROQUEL [Suspect]
     Dosage: 300 MG 35 TABLETS
     Route: 048
  4. SEROQUEL [Suspect]
     Dosage: 300 MG 35 TABLETS
     Route: 048
  5. UNSPECIFIED [Suspect]
  6. DEPAKOTE [Concomitant]
  7. REMERON [Concomitant]
  8. KLONOPIN [Concomitant]
  9. CYMBALTA [Concomitant]

REACTIONS (8)
  - DIABETES MELLITUS [None]
  - DIPLOPIA [None]
  - EYE PAIN [None]
  - HUNGER [None]
  - MULTIPLE DRUG OVERDOSE [None]
  - MUSCLE RIGIDITY [None]
  - VISION BLURRED [None]
  - WEIGHT INCREASED [None]
